FAERS Safety Report 20329601 (Version 5)
Quarter: 2022Q1

REPORT INFORMATION
  Report Type: Report from Study
  Country: CA (occurrence: CA)
  Receive Date: 20220112
  Receipt Date: 20220216
  Transmission Date: 20220424
  Serious: Yes (Hospitalization, Other)
  Sender: FDA-Public Use
  Company Number: CA-ABBVIE-22K-028-4230050-00

PATIENT
  Age: 70 Year
  Sex: Female

DRUGS (4)
  1. RINVOQ [Suspect]
     Active Substance: UPADACITINIB
     Indication: Rheumatoid arthritis
     Route: 048
     Dates: start: 20211002, end: 20220108
  2. RINVOQ [Suspect]
     Active Substance: UPADACITINIB
     Route: 048
     Dates: start: 20220114
  3. DEXAMETHASONE [Concomitant]
     Active Substance: DEXAMETHASONE
     Indication: COVID-19
  4. REMDESIVIR [Concomitant]
     Active Substance: REMDESIVIR
     Indication: COVID-19
     Dates: start: 20220109

REACTIONS (14)
  - SARS-CoV-2 test positive [Recovered/Resolved]
  - Urosepsis [Unknown]
  - Myocardial infarction [Unknown]
  - Mobility decreased [Unknown]
  - Oxygen saturation decreased [Recovered/Resolved]
  - Gait inability [Unknown]
  - Fall [Unknown]
  - Asthenia [Unknown]
  - Confusional state [Unknown]
  - Cystitis [Unknown]
  - Respiratory disorder [Unknown]
  - Fatigue [Unknown]
  - Flank pain [Unknown]
  - Pyrexia [Not Recovered/Not Resolved]

NARRATIVE: CASE EVENT DATE: 20220101
